FAERS Safety Report 9070837 (Version 1)
Quarter: 2013Q1

REPORT INFORMATION
  Report Type: Report from Study
  Country: US (occurrence: US)
  Receive Date: 20130129
  Receipt Date: 20130129
  Transmission Date: 20140127
  Serious: No
  Sender: FDA-Public Use
  Company Number: US-ABBOTT-12P-163-0932457-00

PATIENT
  Age: 46 Year
  Sex: Female

DRUGS (9)
  1. HUMIRA 40 MG/0.8 ML PEN [Suspect]
     Indication: ANKYLOSING SPONDYLITIS
     Dates: start: 20120404
  2. MOBIC [Concomitant]
     Indication: PRODUCT USED FOR UNKNOWN INDICATION
     Dosage: 15MG DAILY
     Route: 048
  3. ULTRAM [Concomitant]
     Indication: PRODUCT USED FOR UNKNOWN INDICATION
     Dosage: 50MG UP TO 4 TIMES DAILY
     Route: 048
  4. TYLENOL [Concomitant]
     Indication: PAIN
  5. VITAMIN D + C [Concomitant]
     Indication: VITAMIN SUPPLEMENTATION
     Route: 048
  6. CALCIUM [Concomitant]
     Indication: MINERAL SUPPLEMENTATION
     Dosage: 600MG DAILY
     Route: 048
  7. VITAMIN B [Concomitant]
     Indication: VITAMIN SUPPLEMENTATION
     Route: 048
  8. PREVACID [Concomitant]
     Indication: GASTROINTESTINAL DISORDER
     Route: 048
  9. LIDODERM PATCH [Concomitant]
     Indication: PAIN
     Dosage: APPLY 1 PATCH AS NEEDED

REACTIONS (1)
  - Injection site rash [Recovering/Resolving]
